FAERS Safety Report 24163464 (Version 1)
Quarter: 2024Q3

REPORT INFORMATION
  Report Type: Spontaneous
  Country: NL (occurrence: NL)
  Receive Date: 20240801
  Receipt Date: 20240801
  Transmission Date: 20241017
  Serious: Yes (Life-Threatening, Other)
  Sender: BAXTER
  Company Number: None

PATIENT
  Age: 54 Year
  Sex: Male
  Weight: 90 kg

DRUGS (2)
  1. PROPOFOL [Suspect]
     Active Substance: PROPOFOL
     Indication: General anaesthesia
     Dosage: 200 MG (MILLIGRAM), DOSAGE TEXT: (200 MG ONCE-OFF)
     Route: 065
     Dates: start: 20240701, end: 20240701
  2. ATROPINE [Concomitant]
     Active Substance: ATROPINE
     Dosage: DOSAGE TEXT: SOLUTION FOR INJECTION/INFUSION, 0.5 MG/ML (MILLIGRAM PER MILLILITER)
     Route: 065

REACTIONS (1)
  - Cardiac arrest [Recovered/Resolved]
